FAERS Safety Report 5531688-X (Version None)
Quarter: 2007Q4

REPORT INFORMATION
  Report Type: 
  Country: None (occurrence: None)
  Receive Date: 20071128
  Receipt Date: 20071112
  Transmission Date: 20080405
  Serious: Yes (Other)
  Sender: FDA-Public Use
  Company Number: S07-GER-06063-01

PATIENT
  Age: 64 Year
  Sex: Female

DRUGS (16)
  1. ESCITALOPRAM [Suspect]
     Indication: BIPOLAR DISORDER
     Dosage: 20 MG QD PO
     Route: 048
     Dates: start: 20060119, end: 20060130
  2. ESCITALOPRAM [Suspect]
     Indication: MAJOR DEPRESSION
     Dosage: 20 MG QD PO
     Route: 048
     Dates: start: 20060119, end: 20060130
  3. ESCITALOPRAM [Suspect]
     Indication: BIPOLAR DISORDER
     Dosage: 10 MG QD PO
     Route: 048
     Dates: start: 20051101, end: 20060118
  4. ESCITALOPRAM [Suspect]
     Indication: MAJOR DEPRESSION
     Dosage: 10 MG QD PO
     Route: 048
     Dates: start: 20051101, end: 20060118
  5. TRUXAL (CHLORPROTHIXENE HYDROCHLORIDE) [Suspect]
     Indication: BIPOLAR DISORDER
     Dosage: 100 MG QD PO
     Route: 048
     Dates: start: 20051101, end: 20060131
  6. TRUXAL (CHLORPROTHIXENE HYDROCHLORIDE) [Suspect]
     Indication: MAJOR DEPRESSION
     Dosage: 100 MG QD PO
     Route: 048
     Dates: start: 20051101, end: 20060131
  7. ZYPREXA [Suspect]
     Indication: BIPOLAR DISORDER
     Dosage: 10 MG QD PO
     Route: 048
     Dates: start: 20060118, end: 20060131
  8. ZYPREXA [Suspect]
     Indication: MAJOR DEPRESSION
     Dosage: 10 MG QD PO
     Route: 048
     Dates: start: 20060118, end: 20060131
  9. QUILONUM (LITHIUM ACETATE) [Concomitant]
  10. LITHIUM CARBONATE [Concomitant]
  11. ASPIRIN [Concomitant]
  12. PANTOZOL (PANTOPRAZOLE SODIUM) [Concomitant]
  13. VOLTAREN [Concomitant]
  14. ENALAPRIL MALEATE [Concomitant]
  15. DYAZIDE [Concomitant]
  16. NOVAMIN (PROCHLORPERAZINE) [Concomitant]

REACTIONS (6)
  - ALANINE AMINOTRANSFERASE INCREASED [None]
  - ASPARTATE AMINOTRANSFERASE INCREASED [None]
  - BIPOLAR DISORDER [None]
  - GAMMA-GLUTAMYLTRANSFERASE INCREASED [None]
  - HEPATIC ENZYME INCREASED [None]
  - MAJOR DEPRESSION [None]
